FAERS Safety Report 9054336 (Version 1)
Quarter: 2013Q1

REPORT INFORMATION
  Report Type: Spontaneous
  Country: US (occurrence: US)
  Receive Date: 20130208
  Receipt Date: 20130208
  Transmission Date: 20140127
  Serious: Yes (Hospitalization, Other)
  Sender: FDA-Public Use
  Company Number: US-ABBOTT-13P-163-1043391-00

PATIENT
  Age: 60 None
  Sex: Female
  Weight: 76.27 kg

DRUGS (9)
  1. NIASPAN (COATED) [Suspect]
     Indication: LOW DENSITY LIPOPROTEIN INCREASED
     Dates: start: 201204, end: 201212
  2. NIASPAN (COATED) [Suspect]
     Dates: start: 201301
  3. VICTOZA [Concomitant]
     Indication: TYPE 2 DIABETES MELLITUS
  4. METFORMIN [Concomitant]
     Indication: TYPE 2 DIABETES MELLITUS
  5. PRAVASTATIN [Concomitant]
     Indication: BLOOD CHOLESTEROL INCREASED
  6. MINOXIDIL [Concomitant]
     Indication: ALOPECIA
  7. LISINOPRIL [Concomitant]
     Indication: HYPERTENSION
  8. FORTEO [Concomitant]
     Indication: OSTEOPOROSIS
  9. ZOLIPIDEM [Concomitant]
     Indication: INSOMNIA

REACTIONS (3)
  - Arthralgia [Recovering/Resolving]
  - Flushing [Not Recovered/Not Resolved]
  - Flushing [Not Recovered/Not Resolved]
